FAERS Safety Report 18559079 (Version 2)
Quarter: 2021Q2

REPORT INFORMATION
  Report Type: Spontaneous
  Country: US (occurrence: US)
  Receive Date: 20201130
  Receipt Date: 20210429
  Transmission Date: 20210717
  Serious: Yes (Hospitalization, Other)
  Sender: FDA-Public Use
  Company Number: US-ADVANZ PHARMA-202011010285

PATIENT

DRUGS (11)
  1. SOTALOL. [Suspect]
     Active Substance: SOTALOL
     Indication: TACHYCARDIA FOETAL
     Dosage: 160 MG, BID, (GESTATIONAL AGE 20 3/7 TO 22 2/7
     Route: 064
  2. PROPRANOLOL [Concomitant]
     Active Substance: PROPRANOLOL HYDROCHLORIDE
     Dosage: UNK
  3. METOPROLOL. [Suspect]
     Active Substance: METOPROLOL
     Dosage: 100 MG, QD
  4. DIGOXIN. [Suspect]
     Active Substance: DIGOXIN
     Indication: TACHYCARDIA FOETAL
     Dosage: LOAD 500UG 3 DOSES MAINTENANCE 250UG EVERY 12 H
     Route: 064
  5. AMIODARONE [Suspect]
     Active Substance: AMIODARONE
     Dosage: 800 MG, QD (GESTATIONAL GE: 22 3/7 TO DELIVERY)
     Route: 064
  6. AMIODARONE [Suspect]
     Active Substance: AMIODARONE
     Dosage: 600 MG, QID, (GESTATIONAL GE: 22 3/7 TO DELIVERY)
     Route: 064
  7. AMIODARONE [Suspect]
     Active Substance: AMIODARONE
     Indication: TACHYCARDIA FOETAL
     Dosage: 5 MG INTRAUMBILICAL, (GESTATIONAL AGE: 22 3/7 ONCE)
  8. DIGOXIN. [Suspect]
     Active Substance: DIGOXIN
     Dosage: (88UG/KG), 64UG, IN GESTATIONAL AGE 24 0/7 ONCE
     Route: 030
  9. SOTALOL. [Suspect]
     Active Substance: SOTALOL
     Dosage: 200 MG, BID
  10. FLECAINIDE [Suspect]
     Active Substance: FLECAINIDE
     Indication: TACHYCARDIA FOETAL
     Dosage: 150 MG, BID (19 6/7 TO DELIVERY)
     Route: 064
  11. METOPROLOL. [Suspect]
     Active Substance: METOPROLOL
     Indication: TACHYCARDIA FOETAL
     Dosage: 50 MG, QD,(GESTATIOAL AGE: 23 3/7 TO DELIVERY)
     Route: 064

REACTIONS (4)
  - Heart valve incompetence [Recovered/Resolved]
  - Exposure during pregnancy [Unknown]
  - Condition aggravated [Recovered/Resolved]
  - Ventricular dysfunction [Recovered/Resolved]
